FAERS Safety Report 4933413-X (Version None)
Quarter: 2006Q1

REPORT INFORMATION
  Report Type: 
  Country: None (occurrence: None)
  Receive Date: 20060306
  Receipt Date: 20051130
  Transmission Date: 20060701
  Serious: Yes (Hospitalization)
  Sender: FDA-Public Use
  Company Number: US-GLAXOSMITHKLINE-A0584112A

PATIENT
  Age: 21 Year
  Sex: Female

DRUGS (4)
  1. WELLBUTRIN XL [Suspect]
     Indication: DEPRESSION
     Route: 048
     Dates: start: 20051114, end: 20051125
  2. BIRTH CONTROL PILLS [Concomitant]
     Indication: CONTRACEPTION
     Route: 048
  3. FISH OIL [Concomitant]
     Indication: NUTRITIONAL SUPPORT
  4. CLARITIN [Concomitant]

REACTIONS (6)
  - ANOREXIA [None]
  - CHEST PAIN [None]
  - MUSCLE TIGHTNESS [None]
  - PALPITATIONS [None]
  - TREMOR [None]
  - WEIGHT DECREASED [None]
